FAERS Safety Report 22160793 (Version 1)
Quarter: 2023Q1

REPORT INFORMATION
  Report Type: Spontaneous
  Country: US (occurrence: US)
  Receive Date: 20230331
  Receipt Date: 20230331
  Transmission Date: 20230417
  Serious: Yes (Other)
  Sender: FDA-Public Use
  Company Number: US-SUN PHARMACEUTICAL INDUSTRIES LTD-2023R1-383571

PATIENT
  Sex: Female
  Weight: 73.469 kg

DRUGS (2)
  1. DEXTROAMPHET SACCHARAT, AMPHET ASPARTATE, DEXTROAMPHET SULFATE AND AMP [Suspect]
     Active Substance: AMPHETAMINE ASPARTATE\AMPHETAMINE SULFATE\DEXTROAMPHETAMINE SACCHARATE\DEXTROAMPHETAMINE SULFATE
     Indication: Product used for unknown indication
     Dosage: 15 MILLIGRAM, QID
     Route: 048
  2. GLIMEPIRIDE [Concomitant]
     Active Substance: GLIMEPIRIDE
     Indication: Hyperglycaemia
     Dosage: 20 MILLIGRAM
     Route: 065

REACTIONS (5)
  - Cognitive disorder [Recovering/Resolving]
  - Cerebrovascular accident [Recovering/Resolving]
  - Drug ineffective [Unknown]
  - Illness [Recovering/Resolving]
  - Diarrhoea [Recovering/Resolving]
